FAERS Safety Report 15947844 (Version 2)
Quarter: 2019Q1

REPORT INFORMATION
  Report Type: Spontaneous
  Country: JP (occurrence: JP)
  Receive Date: 20190212
  Receipt Date: 20190312
  Transmission Date: 20190417
  Serious: Yes (Hospitalization)
  Sender: FDA-Public Use
  Company Number: JP-SA-2019SA037557

PATIENT
  Age: 79 Year
  Sex: Male
  Weight: 59 kg

DRUGS (27)
  1. AVASTIN [Concomitant]
     Active Substance: BEVACIZUMAB
     Dosage: UNK
     Route: 065
     Dates: start: 20180214, end: 20181218
  2. ELPLAT [Suspect]
     Active Substance: OXALIPLATIN
     Dosage: 238.4 MG, QD
     Route: 041
     Dates: start: 20180508, end: 20180508
  3. ELPLAT [Suspect]
     Active Substance: OXALIPLATIN
     Dosage: 238.4 MG, QD
     Route: 041
     Dates: start: 20181120, end: 20181120
  4. EMEND [Concomitant]
     Active Substance: APREPITANT
     Dosage: UNK
     Route: 065
     Dates: start: 20180214, end: 20181220
  5. DECADRON [Concomitant]
     Active Substance: DEXAMETHASONE
     Dosage: UNK
     Route: 065
     Dates: start: 20180215, end: 20181220
  6. ELPLAT [Suspect]
     Active Substance: OXALIPLATIN
     Dosage: 238.4 MG, QD
     Route: 041
     Dates: start: 20181218, end: 20181218
  7. TRAMAL [Concomitant]
     Active Substance: TRAMADOL
     Dosage: UNK
     Route: 065
     Dates: start: 20180123
  8. BESACOLIN [Concomitant]
     Active Substance: BETHANECHOL CHLORIDE
     Dosage: UNK
     Route: 065
  9. ELPLAT [Suspect]
     Active Substance: OXALIPLATIN
     Dosage: 238.4 MG, QD
     Route: 041
     Dates: start: 20180703, end: 20180703
  10. ELPLAT [Suspect]
     Active Substance: OXALIPLATIN
     Dosage: 238.4 MG, QD
     Route: 041
     Dates: start: 20180828, end: 20180828
  11. ELPLAT [Suspect]
     Active Substance: OXALIPLATIN
     Dosage: 238.4 MG, QD
     Route: 041
     Dates: start: 20181023, end: 20181023
  12. XELODA [Concomitant]
     Active Substance: CAPECITABINE
     Dosage: UNK
     Route: 065
     Dates: start: 20180214, end: 20190101
  13. URIEF [Concomitant]
     Active Substance: SILODOSIN
     Dosage: UNK
     Route: 065
  14. ALLOPURINOL. [Concomitant]
     Active Substance: ALLOPURINOL
     Dosage: UNK
     Route: 048
  15. ELPLAT [Suspect]
     Active Substance: OXALIPLATIN
     Indication: RECTAL CANCER
     Dosage: 238.4 MG/BODY
     Route: 041
     Dates: start: 20180214, end: 20180214
  16. ELPLAT [Suspect]
     Active Substance: OXALIPLATIN
     Dosage: 238.4 MG, QD
     Route: 041
     Dates: start: 20180313, end: 20180313
  17. ALOXI [Concomitant]
     Active Substance: PALONOSETRON HYDROCHLORIDE
     Dosage: UNK
     Route: 065
     Dates: start: 20180214, end: 20181218
  18. CANDESARTAN CILEXETIL. [Concomitant]
     Active Substance: CANDESARTAN CILEXETIL
     Dosage: UNK
     Route: 065
  19. ELPLAT [Suspect]
     Active Substance: OXALIPLATIN
     Dosage: 238.4 MG, QD
     Route: 041
     Dates: start: 20180605, end: 20180605
  20. DEXART [Concomitant]
     Active Substance: DEXAMETHASONE SODIUM PHOSPHATE
     Dosage: UNK
     Route: 065
     Dates: start: 20180214, end: 20181218
  21. PYDOXAL [Concomitant]
     Active Substance: PYRIDOXAL
     Dosage: UNK
     Route: 065
     Dates: start: 20180214
  22. BELSOMRA [Concomitant]
     Active Substance: SUVOREXANT
     Dosage: UNK
     Route: 065
  23. ELPLAT [Suspect]
     Active Substance: OXALIPLATIN
     Dosage: 238.4 MG, QD
     Route: 041
     Dates: start: 20180410, end: 20180410
  24. ELPLAT [Suspect]
     Active Substance: OXALIPLATIN
     Dosage: 238.4 MG, QD
     Route: 041
     Dates: start: 20180731, end: 20180731
  25. ELPLAT [Suspect]
     Active Substance: OXALIPLATIN
     Dosage: 238.4 MG, QD
     Route: 041
     Dates: start: 20180925, end: 20180925
  26. AMLODIPINE BESILATE [Concomitant]
     Active Substance: AMLODIPINE BESYLATE
     Dosage: UNK
     Route: 048
  27. BEZAFIBRATE [Concomitant]
     Active Substance: BEZAFIBRATE
     Dosage: UNK
     Route: 065

REACTIONS (1)
  - Cardiac failure [Unknown]

NARRATIVE: CASE EVENT DATE: 20190107
